FAERS Safety Report 5913288-2 (Version None)
Quarter: 2008Q4

REPORT INFORMATION
  Report Type: 
  Country: None (occurrence: None)
  Receive Date: 20081009
  Receipt Date: 20081001
  Transmission Date: 20090506
  Serious: Yes (Disabling, Other)
  Sender: FDA-Public Use
  Company Number: CA-ASTRAZENECA-2008UW18988

PATIENT
  Age: 14531 Day
  Sex: Male
  Weight: 98.6 kg

DRUGS (10)
  1. ATACAND [Suspect]
     Indication: HYPERTENSION
     Route: 048
     Dates: start: 20080626, end: 20080717
  2. ATACAND [Suspect]
     Route: 048
     Dates: start: 20080718, end: 20080827
  3. LISINOPRIL [Concomitant]
     Route: 048
  4. LISINOPRIL [Concomitant]
     Route: 048
     Dates: start: 20080911
  5. ATORVASTATIN [Concomitant]
     Route: 048
  6. CARVEDILOL [Concomitant]
     Route: 048
  7. FUROSEMIDE [Concomitant]
     Route: 048
  8. LEVOTHYROXINE SODIUM [Concomitant]
     Route: 048
  9. VENLAFAXINE HCL [Concomitant]
     Route: 048
  10. DIGOXIN [Concomitant]
     Route: 048

REACTIONS (1)
  - ARTHRITIS [None]
